FAERS Safety Report 17443257 (Version 5)
Quarter: 2022Q3

REPORT INFORMATION
  Report Type: Report from Study
  Country: US (occurrence: US)
  Receive Date: 20200221
  Receipt Date: 20220702
  Transmission Date: 20221026
  Serious: Yes (Other)
  Sender: FDA-Public Use
  Company Number: US-SHIRE-US202006518

PATIENT
  Age: 54 Year
  Sex: Female

DRUGS (8)
  1. PARATHYROID HORMONE [Suspect]
     Active Substance: PARATHYROID HORMONE
     Indication: Hypoparathyroidism
     Dosage: 75 MICROGRAM, 1/WEEK
     Route: 058
     Dates: start: 20170316
  2. PARATHYROID HORMONE [Suspect]
     Active Substance: PARATHYROID HORMONE
     Indication: Hypoparathyroidism
     Dosage: 75 MICROGRAM, 1/WEEK
     Route: 058
     Dates: start: 20170316
  3. PARATHYROID HORMONE [Suspect]
     Active Substance: PARATHYROID HORMONE
     Indication: Hypoparathyroidism
     Dosage: 75 MICROGRAM, 1/WEEK
     Route: 058
     Dates: start: 20170316
  4. PARATHYROID HORMONE [Suspect]
     Active Substance: PARATHYROID HORMONE
     Dosage: 75 MICROGRAM, QD
     Route: 058
     Dates: start: 20170316
  5. PARATHYROID HORMONE [Suspect]
     Active Substance: PARATHYROID HORMONE
     Dosage: 75 MICROGRAM, QD
     Route: 058
     Dates: start: 20170316
  6. PARATHYROID HORMONE [Suspect]
     Active Substance: PARATHYROID HORMONE
     Dosage: 75 MICROGRAM, QD
     Route: 058
     Dates: start: 20170316
  7. CALCIUM [Suspect]
     Active Substance: CALCIUM
     Indication: Product used for unknown indication
     Dosage: UNK
     Route: 065
  8. CALCITRIOL [Suspect]
     Active Substance: CALCITRIOL
     Indication: Product used for unknown indication
     Route: 065

REACTIONS (11)
  - Abdominal pain [Unknown]
  - Acute kidney injury [Unknown]
  - Malnutrition [Unknown]
  - Dehydration [Unknown]
  - Hypercalciuria [Unknown]
  - Vomiting [Unknown]
  - Hypocalcaemia [Unknown]
  - Nausea [Unknown]
  - Skin laceration [Unknown]
  - Product dose omission issue [Recovered/Resolved]
  - Recalled product [Unknown]

NARRATIVE: CASE EVENT DATE: 20200529
